FAERS Safety Report 5626697-6 (Version None)
Quarter: 2008Q1

REPORT INFORMATION
  Report Type: 
  Country: None (occurrence: None)
  Receive Date: 20080214
  Receipt Date: 20080204
  Transmission Date: 20080703
  Serious: Yes (Hospitalization)
  Sender: FDA-Public Use
  Company Number: US-PFIZER INC-2007104436

PATIENT
  Age: 82 Year
  Sex: Female
  Weight: 95.3 kg

DRUGS (2)
  1. LYRICA [Suspect]
     Indication: HERPES ZOSTER
     Route: 048
  2. VALTREX [Suspect]
     Indication: HERPES ZOSTER
     Route: 048

REACTIONS (2)
  - LIVER DISORDER [None]
  - PYREXIA [None]
